FAERS Safety Report 13348159 (Version 1)
Quarter: 2017Q1

REPORT INFORMATION
  Report Type: Spontaneous
  Country: US (occurrence: US)
  Receive Date: 20170318
  Receipt Date: 20170318
  Transmission Date: 20170428
  Serious: No
  Sender: FDA-Public Use
  Company Number: PHEH2017US007794

PATIENT
  Age: 55 Year
  Sex: Male

DRUGS (1)
  1. VOTRIENT [Suspect]
     Active Substance: PAZOPANIB HYDROCHLORIDE
     Indication: RENAL CANCER
     Dosage: 800 MG, QD
     Route: 048
     Dates: start: 20161221

REACTIONS (5)
  - Diarrhoea [Unknown]
  - Skin discolouration [Unknown]
  - Amnesia [Unknown]
  - Vision blurred [Unknown]
  - Hair colour changes [Unknown]

NARRATIVE: CASE EVENT DATE: 20161221
